FAERS Safety Report 14546502 (Version 1)
Quarter: 2018Q1

REPORT INFORMATION
  Report Type: Report from Study
  Country: BG (occurrence: BG)
  Receive Date: 20180219
  Receipt Date: 20180219
  Transmission Date: 20180509
  Serious: Yes (Death, Hospitalization)
  Sender: FDA-Public Use
  Company Number: PHHY2018BG027414

PATIENT
  Age: 73 Year
  Sex: Female
  Weight: 70 kg

DRUGS (2)
  1. ZOLEDRONIC ACID [Concomitant]
     Active Substance: ZOLEDRONIC ACID
     Indication: BONE CANCER
     Dosage: 4 MG, QMO (ONCE PER 28 DAYS)
     Route: 042
     Dates: start: 20140610, end: 20171213
  2. AFINITOR [Suspect]
     Active Substance: EVEROLIMUS
     Indication: BREAST CANCER
     Dosage: 10 MG, QD
     Route: 048
     Dates: start: 20151106, end: 20180112

REACTIONS (2)
  - Breast cancer [Fatal]
  - Haemorrhagic stroke [Unknown]

NARRATIVE: CASE EVENT DATE: 20180112
